FAERS Safety Report 9841994 (Version 1)
Quarter: 2014Q1

REPORT INFORMATION
  Report Type: Spontaneous
  Country: EC (occurrence: EC)
  Receive Date: 20140124
  Receipt Date: 20140124
  Transmission Date: 20141002
  Serious: Yes (Other)
  Sender: FDA-Public Use
  Company Number: EC-BAXTER-2014BAX002514

PATIENT
  Sex: 0

DRUGS (1)
  1. SEVOLURANO 250 ML LIQUIDO INHALABLE [Suspect]
     Indication: ANAESTHESIA
     Route: 065
     Dates: start: 20140104, end: 20140104

REACTIONS (1)
  - Unwanted awareness during anaesthesia [Recovered/Resolved]
